FAERS Safety Report 11717197 (Version 3)
Quarter: 2015Q4

REPORT INFORMATION
  Report Type: Spontaneous
  Country: US (occurrence: US)
  Receive Date: 20151104
  Receipt Date: 20151120
  Transmission Date: 20160304
  Serious: No
  Sender: FDA-Public Use
  Company Number: US-ELI_LILLY_AND_COMPANY-US201109000286

PATIENT
  Age: 76 Year
  Sex: Female

DRUGS (4)
  1. FORTEO [Suspect]
     Active Substance: TERIPARATIDE
     Dosage: 20 UG, QD
     Route: 065
  2. FORTEO [Suspect]
     Active Substance: TERIPARATIDE
     Dosage: 20 UG, QD
     Route: 065
     Dates: end: 20121218
  3. FORTEO [Suspect]
     Active Substance: TERIPARATIDE
     Indication: OSTEOPOROSIS
     Dosage: 20 UG, QD
     Route: 065
     Dates: start: 20110823
  4. FORTEO [Suspect]
     Active Substance: TERIPARATIDE
     Dosage: 20 UG, QD
     Route: 065

REACTIONS (19)
  - Tendon injury [Unknown]
  - Peripheral swelling [Not Recovered/Not Resolved]
  - Back disorder [Unknown]
  - Contusion [Unknown]
  - Crying [Unknown]
  - Screaming [Unknown]
  - Injection site pain [Recovered/Resolved]
  - Osteoporosis [Unknown]
  - Sleep disorder due to a general medical condition [Unknown]
  - Musculoskeletal pain [Unknown]
  - Pain in extremity [Not Recovered/Not Resolved]
  - Neck pain [Unknown]
  - Ankle fracture [Unknown]
  - Middle insomnia [Unknown]
  - Arthralgia [Unknown]
  - Arthritis [Unknown]
  - Musculoskeletal disorder [Unknown]
  - Pain in extremity [Unknown]
  - Injection site bruising [Unknown]

NARRATIVE: CASE EVENT DATE: 20110824
